FAERS Safety Report 4610225-8 (Version None)
Quarter: 2005Q1

REPORT INFORMATION
  Report Type: 
  Country: None (occurrence: None)
  Receive Date: 20050316
  Receipt Date: 20050118
  Transmission Date: 20050727
  Serious: Yes (Other)
  Sender: FDA-Public Use
  Company Number: PHBS2005JP01201

PATIENT
  Sex: Female

DRUGS (5)
  1. TOFRANIL [Suspect]
     Indication: DEPRESSION
     Route: 048
  2. BUP-4 [Suspect]
     Dosage: 20 MG/D
     Route: 048
  3. ALLOZYM [Suspect]
     Dosage: 100 MG/D
     Route: 048
  4. POLYCARBOPHIL CALCIUM [Suspect]
     Dosage: 200 MG/D
     Route: 048
  5. LAXOBERON [Suspect]
     Dosage: UNK, UNK
     Route: 048

REACTIONS (2)
  - ABORTION INDUCED [None]
  - DRUG EXPOSURE DURING PREGNANCY [None]
